FAERS Safety Report 23056445 (Version 1)
Quarter: 2023Q4

REPORT INFORMATION
  Report Type: Spontaneous
  Country: US (occurrence: US)
  Receive Date: 20231011
  Receipt Date: 20231011
  Transmission Date: 20240109
  Serious: Yes (Death, Other)
  Sender: FDA-Public Use
  Company Number: US-GILEAD-2023-0646454

PATIENT
  Age: 27 Year
  Sex: Male
  Weight: 97.6 kg

DRUGS (1)
  1. TECARTUS [Suspect]
     Active Substance: BREXUCABTAGENE AUTOLEUCEL
     Indication: B precursor type acute leukaemia
     Dosage: UNK
     Route: 042
     Dates: start: 20230326, end: 20230326

REACTIONS (24)
  - Infection [Fatal]
  - Immune effector cell-associated neurotoxicity syndrome [Recovered/Resolved]
  - Immune effector cell-associated neurotoxicity syndrome [Recovered/Resolved]
  - Encephalopathy [Recovered/Resolved]
  - Cytokine release syndrome [Recovered/Resolved]
  - Cytokine release syndrome [Recovered/Resolved]
  - Terminal insomnia [Recovered/Resolved]
  - Fatigue [Recovering/Resolving]
  - Malaise [Recovered/Resolved]
  - Myalgia [Recovered/Resolved]
  - Nausea [Recovered/Resolved]
  - Tremor [Recovered/Resolved]
  - Memory impairment [Recovered/Resolved]
  - Aphasia [Recovered/Resolved]
  - Confusional state [Recovered/Resolved]
  - Somnolence [Recovered/Resolved]
  - Pleural effusion [Recovered/Resolved]
  - Tachypnoea [Recovered/Resolved]
  - Ejection fraction decreased [Recovered/Resolved]
  - Aspartate aminotransferase increased [Recovered/Resolved]
  - Agitation [Recovered/Resolved]
  - Hypofibrinogenaemia [Recovered/Resolved]
  - Tachycardia [Recovered/Resolved]
  - Depression [Recovered/Resolved]

NARRATIVE: CASE EVENT DATE: 20230327
